FAERS Safety Report 17473302 (Version 1)
Quarter: 2020Q1

REPORT INFORMATION
  Report Type: Spontaneous
  Country: US (occurrence: US)
  Receive Date: 20200218
  Receipt Date: 20200218
  Transmission Date: 20200409
  Serious: No
  Sender: FDA-Public Use
  Company Number: None

PATIENT
  Age: 79 Year
  Sex: Female
  Weight: 47.63 kg

DRUGS (14)
  1. FLUTICASONE PROPIONATE. [Concomitant]
     Active Substance: FLUTICASONE PROPIONATE
  2. ALEVE [Concomitant]
     Active Substance: NAPROXEN SODIUM
  3. SIMVASTATIN. [Concomitant]
     Active Substance: SIMVASTATIN
  4. MAGNESIUM [Concomitant]
     Active Substance: MAGNESIUM
  5. LATANOPROST. [Concomitant]
     Active Substance: LATANOPROST
  6. ACIDOPHILUS [Concomitant]
     Active Substance: LACTOBACILLUS ACIDOPHILUS
  7. FISH OIL [Concomitant]
     Active Substance: FISH OIL
  8. BRIMONIDINE [Suspect]
     Active Substance: BRIMONIDINE TARTRATE
     Indication: OCULAR DISCOMFORT
     Dosage: ?          QUANTITY:10 ML MILLILITRE(S);?
     Route: 047
     Dates: start: 20200129, end: 20200204
  9. ALVESCO [Concomitant]
     Active Substance: CICLESONIDE
  10. GLUCOSAMINE + CHRONDROITIN [Concomitant]
  11. HYDROCHLOROTHIAZIDE. [Concomitant]
     Active Substance: HYDROCHLOROTHIAZIDE
  12. AMLODIPINE [Concomitant]
     Active Substance: AMLODIPINE BESYLATE
  13. CALCIUM [Concomitant]
     Active Substance: CALCIUM
  14. CENTRUM MULTIVITAMIN [Concomitant]

REACTIONS (4)
  - Eye pain [None]
  - Muscle twitching [None]
  - Insomnia [None]
  - Feeling abnormal [None]

NARRATIVE: CASE EVENT DATE: 20200129
